FAERS Safety Report 6414257-9 (Version None)
Quarter: 2009Q4

REPORT INFORMATION
  Report Type: 
  Country: None (occurrence: None)
  Receive Date: 20091026
  Receipt Date: 20091022
  Transmission Date: 20100525
  Serious: Yes (Hospitalization)
  Sender: FDA-Public Use
  Company Number: US-BRISTOL-MYERS SQUIBB COMPANY-14819981

PATIENT

DRUGS (3)
  1. ABILIFY [Suspect]
     Indication: SCHIZOPHRENIA
     Dosage: 1 DF = 20MG - 30MG
  2. RISPERIDONE [Suspect]
  3. CLOZARIL [Concomitant]

REACTIONS (1)
  - PSYCHOTIC DISORDER [None]
